FAERS Safety Report 12553895 (Version 1)
Quarter: 2016Q3

REPORT INFORMATION
  Report Type: Spontaneous
  Country: SE (occurrence: SE)
  Receive Date: 20160713
  Receipt Date: 20160713
  Transmission Date: 20161109
  Serious: Yes (Hospitalization)
  Sender: FDA-Public Use
  Company Number: SE-PFIZER INC-3248376

PATIENT
  Age: 5 Year
  Sex: Male

DRUGS (1)
  1. DEXDOR [Suspect]
     Active Substance: DEXMEDETOMIDINE HYDROCHLORIDE
     Indication: SEDATION
     Dosage: 100 UG/ML
     Route: 045
     Dates: start: 20150323, end: 20150323

REACTIONS (5)
  - Drug administered to patient of inappropriate age [Unknown]
  - Seizure [Recovered/Resolved]
  - Urinary incontinence [Recovered/Resolved]
  - Loss of consciousness [Recovered/Resolved]
  - Product use issue [Unknown]

NARRATIVE: CASE EVENT DATE: 20150323
